FAERS Safety Report 5213467-6 (Version None)
Quarter: 2007Q1

REPORT INFORMATION
  Report Type: 
  Country: None (occurrence: None)
  Receive Date: 20070119
  Receipt Date: 20070111
  Transmission Date: 20070707
  Serious: Yes (Hospitalization)
  Sender: FDA-Public Use
  Company Number: CH-SANOFI-SYNTHELABO-A01200700446

PATIENT
  Sex: Male
  Weight: 2.4 kg

DRUGS (4)
  1. TRANDATE [Suspect]
     Route: 064
  2. TENORMIN [Suspect]
     Route: 064
     Dates: start: 20050408
  3. PREDNISONE [Suspect]
     Route: 064
  4. PLAQUENIL [Suspect]
     Indication: SYSTEMIC LUPUS ERYTHEMATOSUS
     Route: 064
     Dates: start: 20041103

REACTIONS (3)
  - DRUG EXPOSURE DURING PREGNANCY [None]
  - HYPOGLYCAEMIA NEONATAL [None]
  - PREMATURE BABY [None]
